FAERS Safety Report 15419899 (Version 4)
Quarter: 2019Q1

REPORT INFORMATION
  Report Type: Report from Study
  Country: US (occurrence: US)
  Receive Date: 20180924
  Receipt Date: 20190315
  Transmission Date: 20190417
  Serious: Yes (Hospitalization)
  Sender: FDA-Public Use
  Company Number: US-VERTEX PHARMACEUTICALS-2018-006720

PATIENT
  Age: 22 Year
  Sex: Male
  Weight: 69 kg

DRUGS (19)
  1. CREON [Concomitant]
     Active Substance: PANCRELIPASE AMYLASE\PANCRELIPASE LIPASE\PANCRELIPASE PROTEASE
     Indication: PANCREATIC FAILURE
     Dosage: 4 WITH SNACKS, 5 WITH MEALS
     Route: 048
     Dates: start: 2008
  2. ALBUTEROL                          /00139501/ [Concomitant]
     Active Substance: ALBUTEROL
     Indication: CYSTIC FIBROSIS LUNG
     Dosage: 2 PUFFS, PRN
     Route: 055
     Dates: start: 2008
  3. VITAMIN D                          /00107901/ [Concomitant]
     Active Substance: ERGOCALCIFEROL
     Indication: VITAMIN D DEFICIENCY
     Dosage: 10000 IU, QD
     Route: 048
     Dates: start: 2015
  4. AZITHROMYCIN ANHYDROUS. [Concomitant]
     Active Substance: AZITHROMYCIN ANHYDROUS
     Indication: CYSTIC FIBROSIS LUNG
     Dosage: 500 MG, MWF
     Route: 048
     Dates: start: 2008
  5. TOBI [Concomitant]
     Active Substance: TOBRAMYCIN
     Indication: CYSTIC FIBROSIS LUNG
     Dosage: 112 MG, BID
     Route: 055
     Dates: start: 20180801, end: 20180815
  6. ALLEGRA [Concomitant]
     Active Substance: FEXOFENADINE HYDROCHLORIDE
     Indication: SEASONAL ALLERGY
     Dosage: 180 MG, QD
     Route: 048
     Dates: start: 201804
  7. ADVAIR HFA [Concomitant]
     Active Substance: FLUTICASONE PROPIONATE\SALMETEROL XINAFOATE
     Indication: CYSTIC FIBROSIS LUNG
     Dosage: 2 PUFFS, BID
     Route: 055
     Dates: start: 2013, end: 20180821
  8. PRILOSEC [Concomitant]
     Active Substance: OMEPRAZOLE MAGNESIUM
     Indication: GASTROOESOPHAGEAL REFLUX DISEASE
     Dosage: 20 MG, QD
     Route: 048
     Dates: start: 2008
  9. VITAMIN A                          /00056001/ [Concomitant]
     Active Substance: RETINOL
     Indication: PANCREATIC FAILURE
     Dosage: 10000IU, QD
     Route: 048
     Dates: start: 2015
  10. VX-659 [Suspect]
     Active Substance: INVESTIGATIONAL PRODUCT
     Dosage: 120 MG, QD/ 50 MG, QD/ 75 MG, BID
     Route: 048
     Dates: start: 20181001
  11. MONTELUKAST [Concomitant]
     Active Substance: MONTELUKAST SODIUM
     Indication: CYSTIC FIBROSIS LUNG
     Dosage: 10 MG, QD
     Dates: start: 2008
  12. VITAMIN E                          /00110501/ [Concomitant]
     Active Substance: TOCOPHEROL
     Indication: PANCREATIC FAILURE
     Dosage: 400 IU, QD
     Route: 048
     Dates: start: 2015
  13. DRISDOL [Concomitant]
     Active Substance: ERGOCALCIFEROL
     Dosage: 50000 UNITS
     Route: 055
  14. VX-659 [Suspect]
     Active Substance: INVESTIGATIONAL PRODUCT
     Indication: CYSTIC FIBROSIS
     Dosage: 120 MG, QD/ 50 MG, QD/ 75 MG, BID
     Route: 048
     Dates: start: 20180724, end: 20180831
  15. VX-661/VX-770 [Suspect]
     Active Substance: IVACAFTOR\TEZACAFTOR
     Indication: CYSTIC FIBROSIS
     Dosage: 120 MG, QD/ 50 MG, QD/ 75 MG, BID
     Route: 048
     Dates: start: 20180724, end: 20180831
  16. VX-661/VX-770 [Suspect]
     Active Substance: IVACAFTOR\TEZACAFTOR
     Dosage: 120 MG, QD/ 50 MG, QD/ 75 MG, BID
     Route: 048
     Dates: start: 20181001
  17. PULMOZYME [Concomitant]
     Active Substance: DORNASE ALFA
     Indication: CYSTIC FIBROSIS LUNG
     Dosage: 2.5 MG, QD
     Route: 055
     Dates: start: 2008
  18. ACTIGALL [Concomitant]
     Active Substance: URSODIOL
     Indication: HEPATIC ENZYME INCREASED
     Dosage: 300 MG, BID
     Route: 048
     Dates: start: 20180619
  19. URSODIOL. [Concomitant]
     Active Substance: URSODIOL
     Dosage: 300 MG, BID

REACTIONS (1)
  - Bile duct stone [Recovered/Resolved]

NARRATIVE: CASE EVENT DATE: 20180913
